FAERS Safety Report 7297878-3 (Version None)
Quarter: 2011Q1

REPORT INFORMATION
  Report Type: 
  Country: None (occurrence: None)
  Receive Date: 20110217
  Receipt Date: 20110214
  Transmission Date: 20110831
  Serious: Yes (Other)
  Sender: FDA-Public Use
  Company Number: US-JNJFOC-20110204805

PATIENT
  Sex: Male
  Weight: 90.72 kg

DRUGS (3)
  1. INSULIN [Concomitant]
     Indication: DIABETES MELLITUS
     Route: 058
  2. FENTANYL-100 [Suspect]
     Indication: BACK PAIN
     Dosage: NDC-0781-7243-55
     Route: 062
  3. FENTANYL-100 [Suspect]
     Dosage: NDC: 0781-7242-55
     Route: 062

REACTIONS (11)
  - FEELING ABNORMAL [None]
  - OVERDOSE [None]
  - PRODUCT QUALITY ISSUE [None]
  - TREATMENT NONCOMPLIANCE [None]
  - DEPRESSION [None]
  - DECREASED APPETITE [None]
  - DEPRESSED LEVEL OF CONSCIOUSNESS [None]
  - DRUG DOSE OMISSION [None]
  - SUICIDAL IDEATION [None]
  - WEIGHT DECREASED [None]
  - CONSTIPATION [None]
